FAERS Safety Report 22661054 (Version 1)
Quarter: 2023Q2

REPORT INFORMATION
  Report Type: Spontaneous
  Country: CA (occurrence: CA)
  Receive Date: 20230630
  Receipt Date: 20230630
  Transmission Date: 20230722
  Serious: Yes (Other)
  Sender: FDA-Public Use
  Company Number: CA-SAMSUNG BIOEPIS-SB-2023-17050

PATIENT
  Age: 41 Year
  Sex: Female

DRUGS (3)
  1. TRASTUZUMAB [Suspect]
     Active Substance: TRASTUZUMAB
     Indication: Hormone receptor positive breast cancer
     Dosage: UNKNOWN
     Route: 065
  2. PERJETA [Suspect]
     Active Substance: PERTUZUMAB
     Indication: Hormone receptor positive breast cancer
     Dosage: 14ML VIAL - CONCENTRATE SOL
     Route: 042
  3. PERJETA [Suspect]
     Active Substance: PERTUZUMAB
     Dosage: 14ML VIAL - CONCENTRATE SOL, SOLUTION?INTRAVENOUS
     Route: 042

REACTIONS (2)
  - Cystitis noninfective [Unknown]
  - Urethritis [Unknown]
